FAERS Safety Report 11552955 (Version 2)
Quarter: 2015Q4

REPORT INFORMATION
  Report Type: Spontaneous
  Country: US (occurrence: US)
  Receive Date: 20150925
  Receipt Date: 20151113
  Transmission Date: 20160304
  Serious: No
  Sender: FDA-Public Use
  Company Number: US-009507513-1509USA013172

PATIENT
  Sex: Female

DRUGS (2)
  1. GANIRELIX ACETATE INJECTION [Suspect]
     Active Substance: GANIRELIX ACETATE
     Indication: ASSISTED FERTILISATION
     Dosage: 1 PREFILLED SYRINGE/DAILY
     Route: 058
  2. FOLLISTIM [Concomitant]
     Active Substance: FOLLITROPIN

REACTIONS (1)
  - Blood luteinising hormone increased [Unknown]
